FAERS Safety Report 18146522 (Version 2)
Quarter: 2021Q1

REPORT INFORMATION
  Report Type: Spontaneous
  Country: PL (occurrence: PL)
  Receive Date: 20200813
  Receipt Date: 20210319
  Transmission Date: 20210419
  Serious: Yes (Hospitalization, Other)
  Sender: FDA-Public Use
  Company Number: PL-JNJFOC-20200631355

PATIENT
  Age: 25 Year
  Sex: Female
  Weight: 50 kg

DRUGS (2)
  1. STELARA [Suspect]
     Active Substance: USTEKINUMAB
     Indication: PSORIASIS
     Route: 058
  2. ENOXAPARIN [Concomitant]
     Active Substance: ENOXAPARIN
     Dosage: INDICATION: GYNECOLOGIST^S DECISION
     Route: 058
     Dates: start: 20200525, end: 20210119

REACTIONS (4)
  - Threatened labour [Recovered/Resolved]
  - Exposure during pregnancy [Recovered/Resolved]
  - Hypothyroidism [Unknown]
  - Psoriasis [Unknown]

NARRATIVE: CASE EVENT DATE: 2020
